FAERS Safety Report 22367964 (Version 2)
Quarter: 2023Q2

REPORT INFORMATION
  Report Type: Spontaneous
  Country: SI (occurrence: SI)
  Receive Date: 20230525
  Receipt Date: 20230526
  Transmission Date: 20230722
  Serious: Yes (Death, Life-Threatening, Hospitalization, Other)
  Sender: FDA-Public Use
  Company Number: SI-009507513-2305SVN006919

PATIENT
  Sex: Male

DRUGS (6)
  1. PEMBROLIZUMAB [Suspect]
     Active Substance: PEMBROLIZUMAB
     Indication: Oropharyngeal cancer
     Dosage: 200 MG IV EVERY 3 WEEKS (ONLY ONCE CYCLE ADMINISTERED)
     Route: 042
     Dates: start: 20220922
  2. PEMBROLIZUMAB [Suspect]
     Active Substance: PEMBROLIZUMAB
     Indication: Oesophageal carcinoma
  3. FLUOROURACIL [Suspect]
     Active Substance: FLUOROURACIL
     Indication: Oropharyngeal cancer
     Dosage: UNK
     Dates: start: 20220922
  4. FLUOROURACIL [Suspect]
     Active Substance: FLUOROURACIL
     Indication: Oesophageal carcinoma
  5. CISPLATIN [Suspect]
     Active Substance: CISPLATIN
     Indication: Oropharyngeal cancer
     Dosage: UNK
     Dates: start: 20220922
  6. CISPLATIN [Suspect]
     Active Substance: CISPLATIN
     Indication: Oesophageal carcinoma

REACTIONS (8)
  - Pneumonia aspiration [Fatal]
  - Ileus [Fatal]
  - Aspiration [Fatal]
  - Electrolyte imbalance [Unknown]
  - Pain [Unknown]
  - C-reactive protein increased [Unknown]
  - Condition aggravated [Unknown]
  - Restlessness [Unknown]

NARRATIVE: CASE EVENT DATE: 20220101
